FAERS Safety Report 7309117-5 (Version None)
Quarter: 2011Q1

REPORT INFORMATION
  Report Type: 
  Country: None (occurrence: None)
  Receive Date: 20110223
  Receipt Date: 20110211
  Transmission Date: 20110831
  Serious: No
  Sender: FDA-Public Use
  Company Number: US-JNJFOC-20110205032

PATIENT
  Sex: Female
  Weight: 94.5 kg

DRUGS (22)
  1. SULFASALAZINE [Concomitant]
  2. PREMARIN [Concomitant]
  3. GOLIMUMAB [Suspect]
     Route: 058
  4. METHOTREXATE [Concomitant]
  5. ZOCOR [Concomitant]
  6. CARTIA XT [Concomitant]
  7. PREDNISONE [Concomitant]
  8. SYNTHROID [Concomitant]
  9. PREVACID [Concomitant]
  10. ALBUTEROL [Concomitant]
  11. LASIX [Concomitant]
  12. DIOVAN [Concomitant]
  13. VITAMIN B-12 [Concomitant]
  14. GOLIMUMAB [Suspect]
     Indication: RHEUMATOID ARTHRITIS
     Route: 058
  15. PLACEBO [Suspect]
     Indication: RHEUMATOID ARTHRITIS
     Route: 058
  16. FOLIC ACID [Concomitant]
  17. LANOXIN [Concomitant]
  18. AMIODARONE [Concomitant]
  19. POTASSIUM CHLORIDE [Concomitant]
  20. FOSAMAX [Concomitant]
  21. ASPIRIN [Concomitant]
  22. CLOBETASOL PROPIONATE [Concomitant]

REACTIONS (1)
  - MALIGNANT MELANOMA IN SITU [None]
